FAERS Safety Report 6694730-9 (Version None)
Quarter: 2010Q2

REPORT INFORMATION
  Report Type: 
  Country: None (occurrence: None)
  Receive Date: 20100423
  Receipt Date: 20100420
  Transmission Date: 20101027
  Serious: Yes (Other)
  Sender: FDA-Public Use
  Company Number: A0829357A

PATIENT
  Age: 55 Year
  Sex: Male

DRUGS (1)
  1. AVANDIA [Suspect]
     Indication: DIABETES MELLITUS
     Dosage: 8MG TWICE PER DAY
     Route: 048
     Dates: start: 20001008, end: 20010101

REACTIONS (6)
  - CARDIAC DISORDER [None]
  - CHEST PAIN [None]
  - DIPLEGIA [None]
  - URTICARIA [None]
  - VISUAL IMPAIRMENT [None]
  - WEIGHT INCREASED [None]
